FAERS Safety Report 9440185 (Version 2)
Quarter: 2013Q3

REPORT INFORMATION
  Report Type: Spontaneous
  Country: JP (occurrence: JP)
  Receive Date: 20130805
  Receipt Date: 20130813
  Transmission Date: 20140515
  Serious: Yes (Hospitalization)
  Sender: FDA-Public Use
  Company Number: PHHY2013JP083029

PATIENT
  Age: 87 Year
  Sex: Male
  Weight: 48.2 kg

DRUGS (1)
  1. ZOMETA [Suspect]
     Indication: METASTASES TO BONE
     Dosage: UNK UKN, UNK
     Route: 041

REACTIONS (5)
  - Convulsion [Unknown]
  - Loss of consciousness [Recovered/Resolved]
  - Oculogyric crisis [Unknown]
  - Restlessness [Unknown]
  - Dental caries [Unknown]
